FAERS Safety Report 16163190 (Version 1)
Quarter: 2019Q2

REPORT INFORMATION
  Report Type: Spontaneous
  Country: US (occurrence: US)
  Receive Date: 20190405
  Receipt Date: 20190405
  Transmission Date: 20190711
  Serious: No
  Sender: FDA-Public Use
  Company Number: US-ALLERGAN-1852325US

PATIENT
  Sex: Male

DRUGS (1)
  1. ZENPEP [Suspect]
     Active Substance: PANCRELIPASE AMYLASE\PANCRELIPASE LIPASE\PANCRELIPASE PROTEASE
     Indication: DYSPEPSIA
     Dosage: TWO TIMES A DAY ONCE DURING BREAKFAST AND ONCE AT NIGHT
     Route: 065

REACTIONS (2)
  - Rash [Not Recovered/Not Resolved]
  - Off label use [Unknown]
